FAERS Safety Report 8508927-6 (Version None)
Quarter: 2012Q3

REPORT INFORMATION
  Report Type: 
  Country: None (occurrence: None)
  Receive Date: 20120703
  Receipt Date: 20120618
  Transmission Date: 20120928
  Serious: Yes (Other)
  Sender: FDA-Public Use
  Company Number: 2011RR-45207

PATIENT
  Age: 82 Year
  Sex: Female

DRUGS (5)
  1. SIMVASTATIN [Suspect]
     Indication: HYPERLIPIDAEMIA
     Dosage: 20 MG, DAILY
  2. FORMOTEROL FUMARATE [Concomitant]
  3. ALENDRONATE SODIUM [Concomitant]
  4. AMLODIPINE [Concomitant]
  5. CALCIUM CARBONATE [Concomitant]

REACTIONS (3)
  - POLYNEUROPATHY [None]
  - HYPOREFLEXIA [None]
  - BLOOD CREATINE PHOSPHOKINASE INCREASED [None]
